FAERS Safety Report 20777490 (Version 3)
Quarter: 2022Q2

REPORT INFORMATION
  Report Type: Spontaneous
  Country: US (occurrence: US)
  Receive Date: 20220503
  Receipt Date: 20220527
  Transmission Date: 20220720
  Serious: Yes (Other)
  Sender: FDA-Public Use
  Company Number: US-MLMSERVICE-20220415-3503874-1

PATIENT
  Age: 59 Year
  Sex: Male

DRUGS (2)
  1. DEXAMETHASONE [Suspect]
     Active Substance: DEXAMETHASONE
     Indication: Back pain
     Dosage: 10 MILLIGRAM (ON THE RIGHT SIDE AND LEFT SIDE OF HIS BACK)
     Route: 008
  2. BUPIVACAINE [Concomitant]
     Active Substance: BUPIVACAINE
     Indication: Back pain
     Dosage: 1 MILLILITER (ON THE RIGHT SIDE AND LEFT SIDE OF HIS BACK)
     Route: 008

REACTIONS (6)
  - Hiccups [Recovered/Resolved]
  - Disease progression [Unknown]
  - Abdominal pain [Unknown]
  - Flatulence [Unknown]
  - Abdominal distension [Unknown]
  - Abdominal tenderness [Not Recovered/Not Resolved]
